FAERS Safety Report 8963175 (Version 1)
Quarter: 2012Q4

REPORT INFORMATION
  Report Type: 
  Country: US (occurrence: US)
  Receive Date: 20121214
  Receipt Date: 20121214
  Transmission Date: 20130627
  Serious: Yes (Hospitalization, Other)
  Sender: FDA-Public Use
  Company Number: US-ELI_LILLY_AND_COMPANY-US201212001349

PATIENT
  Sex: Male

DRUGS (2)
  1. HUMALOG LISPRO [Suspect]
     Indication: DIABETES MELLITUS
     Dosage: UNK, unknown
     Dates: start: 1992
  2. HUMALOG LISPRO [Suspect]
     Dosage: UNK, unknown

REACTIONS (14)
  - Toe amputation [Unknown]
  - Prostatic operation [Unknown]
  - Cardiovascular disorder [Not Recovered/Not Resolved]
  - Wound infection staphylococcal [Recovered/Resolved]
  - Testicular cyst [Unknown]
  - Renal cyst [Unknown]
  - Retinopathy [Unknown]
  - Neuropathy peripheral [Not Recovered/Not Resolved]
  - Hypoglycaemia [Unknown]
  - Haemorrhoids [Unknown]
  - Gait disturbance [Not Recovered/Not Resolved]
  - Blood glucose increased [Recovered/Resolved]
  - Drug ineffective [Recovered/Resolved]
  - Medication error [Recovered/Resolved]
